FAERS Safety Report 8315029-0 (Version None)
Quarter: 2012Q2

REPORT INFORMATION
  Report Type: 
  Country: None (occurrence: None)
  Receive Date: 20120426
  Receipt Date: 20120417
  Transmission Date: 20120825
  Serious: Yes (Other)
  Sender: FDA-Public Use
  Company Number: US-ABBOTT-12P-163-0926920-00

PATIENT
  Sex: Female
  Weight: 60.836 kg

DRUGS (6)
  1. HUMIRA [Suspect]
     Indication: PSORIATIC ARTHROPATHY
     Route: 058
     Dates: start: 20110901, end: 20120322
  2. VITAMIN D [Concomitant]
     Indication: VITAMIN D DEFICIENCY
  3. HUMIRA [Suspect]
     Indication: PSORIASIS
     Route: 058
     Dates: start: 20090101, end: 20110901
  4. CALCIUM [Concomitant]
     Indication: MINERAL SUPPLEMENTATION
  5. ENALAPRIL MALEATE [Concomitant]
     Indication: HYPERTENSION
  6. ASCORBIC ACID [Concomitant]
     Indication: VITAMIN SUPPLEMENTATION

REACTIONS (3)
  - DIVERTICULITIS [None]
  - INTESTINAL STENOSIS [None]
  - PSORIASIS [None]
